FAERS Safety Report 6983101-3 (Version None)
Quarter: 2010Q3

REPORT INFORMATION
  Report Type: 
  Country: None (occurrence: None)
  Receive Date: 20100914
  Receipt Date: 20100805
  Transmission Date: 20110219
  Serious: No
  Sender: FDA-Public Use
  Company Number: US-PFIZER INC-2010041985

PATIENT
  Sex: Male
  Weight: 94.785 kg

DRUGS (9)
  1. LYRICA [Suspect]
     Dosage: 150 MG, 2X/DAY
     Route: 048
     Dates: start: 20090501, end: 20100301
  2. LYRICA [Suspect]
     Dosage: 150 MG, 3X/DAY
     Route: 048
     Dates: start: 20100301, end: 20100401
  3. OXYCONTIN [Concomitant]
     Dosage: 80 MG, 3X/DAY
  4. OMEPRAZOLE [Concomitant]
     Dosage: 20 MG, 1X/DAY
  5. LASIX [Concomitant]
     Dosage: 40 MG, 1X/DAY
  6. COMBIVENT [Concomitant]
     Dosage: UNK
     Route: 055
  7. COLCHICINE [Concomitant]
     Dosage: 0.6 MG, 2X/DAY
  8. ALPRAZOLAM [Concomitant]
     Dosage: 2 MG, 3X/DAY
  9. ALLOPURINOL [Concomitant]
     Dosage: 100 MG, UNK

REACTIONS (2)
  - ECZEMA [None]
  - RASH [None]
